FAERS Safety Report 23361379 (Version 1)
Quarter: 2024Q1

REPORT INFORMATION
  Report Type: Spontaneous
  Country: US (occurrence: None)
  Receive Date: 20240102
  Receipt Date: 20240102
  Transmission Date: 20240410
  Serious: Yes (Other)
  Sender: FDA-Public Use
  Company Number: None

PATIENT
  Age: 78 Year
  Sex: Female
  Weight: 54 kg

DRUGS (5)
  1. IMIQUIMOD [Suspect]
     Active Substance: IMIQUIMOD
     Indication: Actinic keratosis
     Dosage: FREQUENCY : DAILY;?
     Route: 061
  2. CALCIPOTRIENE [Concomitant]
     Active Substance: CALCIPOTRIENE
     Dates: start: 20231123
  3. UNSPECIFIED INGREDIENT [Concomitant]
     Active Substance: UNSPECIFIED INGREDIENT
     Dates: start: 20231101, end: 20231101
  4. Influenza quad vaccine [Concomitant]
     Dates: start: 20231101, end: 20231101
  5. Covid 2023 vaccine [Concomitant]
     Dates: start: 20231101, end: 20231101

REACTIONS (12)
  - Immune system disorder [None]
  - Stomatitis [None]
  - Aphthous ulcer [None]
  - Tachycardia [None]
  - Headache [None]
  - Dizziness [None]
  - Fall [None]
  - Pyrexia [None]
  - Colitis [None]
  - Confusional state [None]
  - Weight decreased [None]
  - Cytokine abnormal [None]

NARRATIVE: CASE EVENT DATE: 20231201
